FAERS Safety Report 11585613 (Version 2)
Quarter: 2015Q4

REPORT INFORMATION
  Report Type: Spontaneous
  Country: JP (occurrence: JP)
  Receive Date: 20151001
  Receipt Date: 20151103
  Transmission Date: 20160304
  Serious: Yes (Life-Threatening)
  Sender: FDA-Public Use
  Company Number: JP-JNJFOC-20150927712

PATIENT
  Age: 81 Year
  Sex: Female

DRUGS (13)
  1. THYRADIN [Suspect]
     Active Substance: LEVOTHYROXINE
     Indication: PRODUCT USED FOR UNKNOWN INDICATION
     Route: 048
  2. LYRICA [Suspect]
     Active Substance: PREGABALIN
     Indication: POST HERPETIC NEURALGIA
     Route: 048
     Dates: start: 20150214, end: 20150225
  3. REFLEX [Suspect]
     Active Substance: MIRTAZAPINE
     Indication: DEPRESSION
     Route: 048
     Dates: start: 20150305
  4. HERBAL NOS [Suspect]
     Active Substance: HERBALS
     Indication: INTERCOSTAL NEURALGIA
     Route: 048
     Dates: start: 20150602
  5. HERBAL NOS [Suspect]
     Active Substance: HERBALS
     Indication: INTERCOSTAL NEURALGIA
     Route: 048
     Dates: start: 20150420, end: 20150601
  6. LYRICA [Suspect]
     Active Substance: PREGABALIN
     Indication: POST HERPETIC NEURALGIA
     Route: 048
     Dates: start: 20150327
  7. RHEUMATREX [Suspect]
     Active Substance: METHOTREXATE SODIUM
     Indication: PRODUCT USED FOR UNKNOWN INDICATION
     Route: 048
  8. PREDNISOLONE. [Suspect]
     Active Substance: PREDNISOLONE
     Indication: PRODUCT USED FOR UNKNOWN INDICATION
     Route: 048
  9. TRAMAL OD [Suspect]
     Active Substance: TRAMADOL
     Indication: POST HERPETIC NEURALGIA
     Route: 048
     Dates: start: 20150629
  10. TRAMAL OD [Suspect]
     Active Substance: TRAMADOL
     Indication: POST HERPETIC NEURALGIA
     Route: 048
     Dates: start: 20150528, end: 20150601
  11. ONETRAM [Suspect]
     Active Substance: TRAMADOL HYDROCHLORIDE
     Indication: POST HERPETIC NEURALGIA
     Route: 048
     Dates: start: 20150620, end: 20150628
  12. LYRICA [Suspect]
     Active Substance: PREGABALIN
     Indication: POST HERPETIC NEURALGIA
     Route: 048
     Dates: start: 20150319, end: 20150326
  13. LYRICA [Suspect]
     Active Substance: PREGABALIN
     Indication: POST HERPETIC NEURALGIA
     Route: 048
     Dates: start: 20150226, end: 20150318

REACTIONS (4)
  - Atrial fibrillation [Unknown]
  - Acute abdomen [Unknown]
  - Language disorder [Recovered/Resolved]
  - Altered state of consciousness [Recovered/Resolved]

NARRATIVE: CASE EVENT DATE: 20150917
